FAERS Safety Report 18479816 (Version 1)
Quarter: 2020Q4

REPORT INFORMATION
  Report Type: Spontaneous
  Country: DE (occurrence: DE)
  Receive Date: 20201109
  Receipt Date: 20201109
  Transmission Date: 20210114
  Serious: Yes (Death, Other)
  Sender: FDA-Public Use
  Company Number: DE-MICRO LABS LIMITED-ML2020-03306

PATIENT
  Age: 28 Year
  Sex: Female

DRUGS (13)
  1. SERTRALINE [Suspect]
     Active Substance: SERTRALINE HYDROCHLORIDE
  2. THC AND METABOLITES (TETRAHYDROCANNABINOL) [Suspect]
     Active Substance: .DELTA.8-TETRAHYDROCANNABINOL\11-NOR-9-CARBOXY-.DELTA-9-TETRAHYDROCANNABINOL
  3. BROMAZEPAM [Suspect]
     Active Substance: BROMAZEPAM
  4. MIRTAZAPINE. [Suspect]
     Active Substance: MIRTAZAPINE
  5. CAFFEINE CITRATE. [Suspect]
     Active Substance: CAFFEINE CITRATE
  6. AMPHETAMINE [Suspect]
     Active Substance: AMPHETAMINE
  7. QUETIAPINE. [Suspect]
     Active Substance: QUETIAPINE
  8. 4- FA (4-FLUOROAMPHETAMINE) [Suspect]
     Active Substance: 4-FLUOROAMPHETAMINE
  9. TRIMIPRAMINE AND METABOLITES [Suspect]
     Active Substance: TRIMIPRAMINE MALEATE
  10. TRIMIPRAMINE [Suspect]
     Active Substance: TRIMIPRAMINE
  11. MELPERONE [Suspect]
     Active Substance: MELPERONE
  12. ALCOHOL. [Suspect]
     Active Substance: ALCOHOL
  13. METHADONE [Suspect]
     Active Substance: METHADONE HYDROCHLORIDE

REACTIONS (2)
  - Drug abuse [Unknown]
  - Toxicity to various agents [Fatal]
